FAERS Safety Report 9631397 (Version 1)
Quarter: 2013Q4

REPORT INFORMATION
  Report Type: Report from Study
  Country: FR (occurrence: FR)
  Receive Date: 20131018
  Receipt Date: 20131018
  Transmission Date: 20140711
  Serious: Yes (Other)
  Sender: FDA-Public Use
  Company Number: FR-INCYTE CORPORATION-2013IN002379

PATIENT
  Age: 84 Year
  Sex: Male

DRUGS (1)
  1. JAKAVI [Suspect]
     Dosage: UNK,UNK,UNK
     Route: 065

REACTIONS (1)
  - Diarrhoea [Unknown]
